FAERS Safety Report 6856803-7 (Version None)
Quarter: 2010Q3

REPORT INFORMATION
  Report Type: 
  Country: None (occurrence: None)
  Receive Date: 20100719
  Receipt Date: 20100708
  Transmission Date: 20110219
  Serious: Yes (Other)
  Sender: FDA-Public Use
  Company Number: US-AMGEN-QUU415328

PATIENT
  Sex: Male
  Weight: 114.4 kg

DRUGS (29)
  1. EPOGEN [Suspect]
     Indication: DIALYSIS
     Dates: start: 20080221
  2. ALDACTONE [Concomitant]
  3. ASPIRIN [Concomitant]
  4. BUMEX [Concomitant]
  5. CLARITIN [Concomitant]
  6. COLACE [Concomitant]
  7. COREG [Concomitant]
  8. COUMADIN [Concomitant]
  9. COZAAR [Concomitant]
  10. FLOMAX [Concomitant]
  11. IMDUR [Concomitant]
  12. LEXAPRO [Concomitant]
  13. LOPRESSOR [Concomitant]
  14. LOVAZA [Concomitant]
  15. PLAVIX [Concomitant]
  16. PROTONIX [Concomitant]
  17. RENAGEL [Concomitant]
  18. ROCALTROL [Concomitant]
  19. MULTI-VITAMINS [Concomitant]
  20. TRILIPIX [Concomitant]
  21. PRAVACHOL [Concomitant]
  22. LANTUS [Concomitant]
  23. FLEXERIL [Concomitant]
  24. MIRALAX [Concomitant]
  25. TYLENOL [Concomitant]
  26. ULTRAM [Concomitant]
  27. FISH OIL [Concomitant]
  28. ZOFRAN [Concomitant]
  29. NOVOLOG [Concomitant]

REACTIONS (13)
  - ANAEMIA MACROCYTIC [None]
  - ASTHENIA [None]
  - BLOOD DISORDER [None]
  - DIARRHOEA [None]
  - DRUG INEFFECTIVE [None]
  - HAEMORRHAGE [None]
  - MALAISE [None]
  - MALNUTRITION [None]
  - NAUSEA [None]
  - PERIPHERAL ISCHAEMIA [None]
  - PERITONITIS [None]
  - RESTLESS LEGS SYNDROME [None]
  - SLEEP APNOEA SYNDROME [None]
